FAERS Safety Report 16178197 (Version 1)
Quarter: 2019Q2

REPORT INFORMATION
  Report Type: Spontaneous
  Country: US (occurrence: US)
  Receive Date: 20190410
  Receipt Date: 20190410
  Transmission Date: 20190711
  Serious: No
  Sender: FDA-Public Use
  Company Number: US-APOTEX-2019AP009613

PATIENT
  Age: 69 Year
  Sex: Female

DRUGS (7)
  1. RISPERIDONE. [Suspect]
     Active Substance: RISPERIDONE
     Indication: SCREAMING
     Dosage: UNK
     Route: 065
  2. LORAZEPAM. [Suspect]
     Active Substance: LORAZEPAM
     Indication: SCREAMING
     Dosage: UNK
     Route: 065
  3. QUETIAPINE. [Suspect]
     Active Substance: QUETIAPINE
     Indication: SCREAMING
     Dosage: UNK
     Route: 065
  4. ARIPIPRAZOLE. [Suspect]
     Active Substance: ARIPIPRAZOLE
     Indication: SCREAMING
     Dosage: UNK
     Route: 065
  5. AMITRIPTYLINE [Suspect]
     Active Substance: AMITRIPTYLINE
     Indication: SCREAMING
     Dosage: 30 MG, Q.H.S.
     Route: 065
  6. SERTRALINE [Suspect]
     Active Substance: SERTRALINE HYDROCHLORIDE
     Indication: SCREAMING
     Dosage: UNK
     Route: 065
  7. CLONAZEPAM. [Suspect]
     Active Substance: CLONAZEPAM
     Indication: SCREAMING
     Dosage: UNK
     Route: 065

REACTIONS (2)
  - Drug ineffective [Unknown]
  - Treatment noncompliance [Unknown]
